FAERS Safety Report 4611111-X (Version None)
Quarter: 2005Q1

REPORT INFORMATION
  Report Type: 
  Country: None (occurrence: None)
  Receive Date: 20050315
  Receipt Date: 20050315
  Transmission Date: 20050727
  Serious: No
  Sender: FDA-Public Use
  Company Number: None

PATIENT

DRUGS (1)
  1. APLISOL [Suspect]
     Indication: TUBERCULIN TEST
     Dosage: 1 CC SUB Q
     Route: 058
     Dates: start: 20050310

REACTIONS (1)
  - TUBERCULIN TEST POSITIVE [None]
